FAERS Safety Report 6018678-8 (Version None)
Quarter: 2008Q4

REPORT INFORMATION
  Report Type: 
  Country: None (occurrence: None)
  Receive Date: 20081223
  Receipt Date: 20081217
  Transmission Date: 20090506
  Serious: Yes (Death, Hospitalization, Other)
  Sender: FDA-Public Use
  Company Number: US-AMGEN-QUU324440

PATIENT
  Sex: Male

DRUGS (1)
  1. ENBREL [Suspect]
     Indication: RHEUMATOID ARTHRITIS
     Route: 058
     Dates: start: 20050615, end: 20081201

REACTIONS (6)
  - BLOOD PRESSURE INCREASED [None]
  - CARDIAC MURMUR [None]
  - CHEST PAIN [None]
  - DYSPNOEA [None]
  - INFECTED BITES [None]
  - PULMONARY OEDEMA [None]
